FAERS Safety Report 5698295-X (Version None)
Quarter: 2008Q2

REPORT INFORMATION
  Report Type: 
  Country: None (occurrence: None)
  Receive Date: 20080408
  Receipt Date: 20080331
  Transmission Date: 20081010
  Serious: Yes (Other)
  Sender: FDA-Public Use
  Company Number: DE-BOEHRINGER INGELHEIM GMBH, GERMANY-2008-DE-01899DE

PATIENT
  Age: 40 Year
  Sex: Female
  Weight: 70 kg

DRUGS (2)
  1. MICARDIS HCT [Suspect]
     Dosage: 80 MG TELMISARTAN, 12,5 MG HYDROCHLORTHIAZIDE
     Route: 048
  2. BISOPROLOL FUMARATE [Suspect]
     Route: 048

REACTIONS (3)
  - BRADYCARDIA [None]
  - DRUG ABUSE [None]
  - SUICIDE ATTEMPT [None]
